FAERS Safety Report 14840232 (Version 2)
Quarter: 2018Q2

REPORT INFORMATION
  Report Type: Report from Study
  Country: None (occurrence: US)
  Receive Date: 20180503
  Receipt Date: 20180518
  Transmission Date: 20180711
  Serious: Yes (Death, Hospitalization)
  Sender: FDA-Public Use
  Company Number: US-ABBVIE-18K-163-2343406-00

PATIENT
  Age: 72 Year
  Sex: Male

DRUGS (1)
  1. HUMIRA [Suspect]
     Active Substance: ADALIMUMAB
     Indication: PSORIASIS
     Route: 058
     Dates: start: 2008, end: 2018

REACTIONS (4)
  - Cardiac dysfunction [Fatal]
  - Circulatory collapse [Unknown]
  - Pulmonary thrombosis [Fatal]
  - Intracardiac thrombus [Fatal]

NARRATIVE: CASE EVENT DATE: 201801
